FAERS Safety Report 5294396-9 (Version None)
Quarter: 2007Q2

REPORT INFORMATION
  Report Type: 
  Country: None (occurrence: None)
  Receive Date: 20070409
  Receipt Date: 20070409
  Transmission Date: 20071010
  Serious: Yes (Life-Threatening)
  Sender: FDA-Public Use
  Company Number: None

PATIENT
  Age: 34 Year
  Sex: Female
  Weight: 66.6788 kg

DRUGS (1)
  1. PROAIR HFA [Suspect]
     Indication: ASTHMA
     Dosage: 1 PUFF 3X/DAY PO
     Route: 048
     Dates: start: 20070129, end: 20070407

REACTIONS (6)
  - ASTHMA [None]
  - CONDITION AGGRAVATED [None]
  - DECREASED ACTIVITY [None]
  - DRUG INEFFECTIVE [None]
  - FEAR [None]
  - PHARMACEUTICAL PRODUCT COMPLAINT [None]
